FAERS Safety Report 20881822 (Version 2)
Quarter: 2022Q3

REPORT INFORMATION
  Report Type: Spontaneous
  Country: US (occurrence: US)
  Receive Date: 20220527
  Receipt Date: 20220705
  Transmission Date: 20221027
  Serious: Yes (Other)
  Sender: FDA-Public Use
  Company Number: US-BRISTOL-MYERS SQUIBB COMPANY-2022-031679

PATIENT
  Age: 76 Year
  Sex: Female
  Weight: 88.45 kg

DRUGS (16)
  1. POMALYST [Suspect]
     Active Substance: POMALIDOMIDE
     Indication: Plasma cell myeloma
     Dosage: FREQ: ONCE DAILY ?21 DAYS THEN 7 DAYS OFF.
     Route: 048
     Dates: start: 20220408
  2. ACYCLOVIR [Concomitant]
     Active Substance: ACYCLOVIR
  3. AMBIEN [Concomitant]
     Active Substance: ZOLPIDEM TARTRATE
  4. CALCITRIOL [Concomitant]
     Active Substance: CALCITRIOL
  5. CARAFATE [Concomitant]
     Active Substance: SUCRALFATE
  6. CARVEDILOL [Concomitant]
     Active Substance: CARVEDILOL
  7. DEXAMETHASONE PHOSPHATE;SULFACETAMIDE SODIUM [Concomitant]
     Dosage: 4MG/ML
  8. FENTANYL;ROPIVACAINE [Concomitant]
     Dosage: 100MCG/HR PATCH
  9. FOLBIC [Concomitant]
     Active Substance: CYANOCOBALAMIN\FOLIC ACID\PYRIDOXINE
     Dosage: FOLIC 2.5/ PYRID 25/CYAN 2
  10. HYDROCHLOROTHIAZIDE [Concomitant]
     Active Substance: HYDROCHLOROTHIAZIDE
  11. KYPROLIS [Concomitant]
     Active Substance: CARFILZOMIB
  12. OMEPRAZOLE [Concomitant]
     Active Substance: OMEPRAZOLE
  13. PERCOCET [Concomitant]
     Active Substance: ACETAMINOPHEN\OXYCODONE HYDROCHLORIDE
     Dosage: 10/325 MILLIGRAM
  14. POTASSIUM CHLORIDE [Concomitant]
     Active Substance: POTASSIUM CHLORIDE
     Dosage: ER TABLETS
  15. SYNTHROID [Concomitant]
     Active Substance: LEVOTHYROXINE SODIUM
  16. VITAMIN D NOS [Concomitant]
     Active Substance: VITAMIN D NOS

REACTIONS (2)
  - Adverse event [Unknown]
  - Paraesthesia [Recovered/Resolved]

NARRATIVE: CASE EVENT DATE: 20220401
